FAERS Safety Report 23197962 (Version 2)
Quarter: 2023Q4

REPORT INFORMATION
  Report Type: Other
  Country: JP (occurrence: JP)
  Receive Date: 20231117
  Receipt Date: 20231229
  Transmission Date: 20240109
  Serious: Yes (Death, Life-Threatening, Hospitalization)
  Sender: FDA-Public Use
  Company Number: JP-UROVANT SCIENCES GMBH-202311-URV-002205

PATIENT
  Age: 68 Year
  Sex: Male

DRUGS (12)
  1. VIBEGRON [Suspect]
     Active Substance: VIBEGRON
     Indication: Hypertonic bladder
     Dosage: UNK
     Route: 048
     Dates: end: 20230905
  2. PREDNISOLONE [Suspect]
     Active Substance: PREDNISOLONE
     Indication: Microscopic polyangiitis
     Dosage: 15 MG, QD
     Route: 048
     Dates: end: 20230504
  3. PREDNISOLONE [Suspect]
     Active Substance: PREDNISOLONE
     Dosage: 13 MG, QD
     Route: 048
     Dates: start: 20230505, end: 20230529
  4. PREDNISOLONE [Suspect]
     Active Substance: PREDNISOLONE
     Dosage: 10 MG, QD
     Route: 048
     Dates: start: 20230530, end: 20230731
  5. PREDNISOLONE [Suspect]
     Active Substance: PREDNISOLONE
     Dosage: 50 MG, QD
     Route: 048
     Dates: start: 20230804, end: 20230817
  6. PREDNISOLONE [Suspect]
     Active Substance: PREDNISOLONE
     Dosage: 40 MG, QD
     Route: 048
     Dates: start: 20230818, end: 20230827
  7. PREDNISOLONE [Suspect]
     Active Substance: PREDNISOLONE
     Dosage: 80 MG, QD
     Route: 048
     Dates: start: 20230831, end: 20230904
  8. PREDNISOLONE [Suspect]
     Active Substance: PREDNISOLONE
     Dosage: 60 MG, QD
     Route: 048
     Dates: start: 20230905, end: 20230911
  9. PREDNISOLONE [Suspect]
     Active Substance: PREDNISOLONE
     Dosage: 50 MG, QD
     Route: 048
     Dates: start: 20230912, end: 20230918
  10. PREDNISOLONE [Suspect]
     Active Substance: PREDNISOLONE
     Dosage: 40 MG, QD
     Route: 048
     Dates: start: 20230919, end: 20230925
  11. METHYLPREDNISOLONE SODIUM SUCCINATE [Suspect]
     Active Substance: METHYLPREDNISOLONE SODIUM SUCCINATE
     Indication: Microscopic polyangiitis
     Dosage: 1000 MG, QD
     Route: 042
     Dates: start: 20230801, end: 20230803
  12. METHYLPREDNISOLONE SODIUM SUCCINATE [Suspect]
     Active Substance: METHYLPREDNISOLONE SODIUM SUCCINATE
     Dosage: 1000 MG, QD
     Route: 042
     Dates: start: 20230828, end: 20230830

REACTIONS (7)
  - Interstitial lung disease [Fatal]
  - Pneumocystis jirovecii pneumonia [Unknown]
  - Bronchopulmonary aspergillosis [Unknown]
  - Rhabdomyolysis [Unknown]
  - Pneumonia aspiration [Recovered/Resolved]
  - Acute kidney injury [Not Recovered/Not Resolved]
  - Pneumonia aspiration [Unknown]

NARRATIVE: CASE EVENT DATE: 20230730
